FAERS Safety Report 7762981-8 (Version None)
Quarter: 2011Q3

REPORT INFORMATION
  Report Type: 
  Country: None (occurrence: None)
  Receive Date: 20110920
  Receipt Date: 20110913
  Transmission Date: 20111222
  Serious: Yes (Other)
  Sender: FDA-Public Use
  Company Number: US-JNJFOC-20110905828

PATIENT
  Sex: Female
  Weight: 72.58 kg

DRUGS (2)
  1. INVEGA [Suspect]
     Route: 048
     Dates: start: 20110501, end: 20110101
  2. INVEGA [Suspect]
     Indication: DEPRESSION
     Route: 048
     Dates: start: 20110101

REACTIONS (1)
  - WEIGHT INCREASED [None]
